FAERS Safety Report 5235133-3 (Version None)
Quarter: 2007Q1

REPORT INFORMATION
  Report Type: 
  Country: None (occurrence: None)
  Receive Date: 20070207
  Receipt Date: 20070122
  Transmission Date: 20070707
  Serious: Yes (Hospitalization)
  Sender: FDA-Public Use
  Company Number: A-JP2007-14073

PATIENT
  Age: 63 Year
  Sex: Female
  Weight: 46 kg

DRUGS (14)
  1. TRACLEER [Suspect]
     Indication: PULMONARY HYPERTENSION
     Dosage: 62.5 MG, BID, ORAL
     Route: 048
     Dates: start: 20060731, end: 20060816
  2. ALFACALCIDOL (ALFACALCIDOL) [Concomitant]
  3. FUROSEMIDE [Concomitant]
  4. VITAMIN B COMPLEX (VITAMIN-B-KOMPLEX STANDARD) [Concomitant]
  5. PREDNISOLONE [Concomitant]
  6. FAMOTIDINE [Concomitant]
  7. RISEDRONATE SODIUM [Concomitant]
  8. ATORVASTATIN CALCIUM [Concomitant]
  9. SULFAMETHOXAZOLE + TRIMETHOPRIM [Concomitant]
  10. TERBINAFIEN HYDROCHLORIDE (TERBINAFINE HYDROCHLORIDE) [Concomitant]
  11. BROMHEXINE (BROMHEXINE) [Concomitant]
  12. SALBUTAMOL SULFATE (SALBUTAMOL SULFATE) [Concomitant]
  13. TULOBUTEROL (TULOBUTEROL) [Concomitant]
  14. CHINESE HERB [Concomitant]

REACTIONS (2)
  - ALANINE AMINOTRANSFERASE INCREASED [None]
  - ASPARTATE AMINOTRANSFERASE INCREASED [None]
